FAERS Safety Report 11177643 (Version 1)
Quarter: 2015Q2

REPORT INFORMATION
  Report Type: Spontaneous
  Country: US (occurrence: US)
  Receive Date: 20150610
  Receipt Date: 20150610
  Transmission Date: 20150821
  Serious: No
  Sender: FDA-Public Use
  Company Number: US-PFIZER INC-2015185669

PATIENT
  Age: 67 Year
  Sex: Female

DRUGS (1)
  1. IBUPROFEN. [Suspect]
     Active Substance: IBUPROFEN
     Indication: DISCOMFORT
     Dosage: UNK

REACTIONS (4)
  - Condition aggravated [Unknown]
  - Drug hypersensitivity [Unknown]
  - Product use issue [Unknown]
  - Cardiac disorder [Unknown]
